FAERS Safety Report 17837113 (Version 1)
Quarter: 2020Q2

REPORT INFORMATION
  Report Type: Spontaneous
  Country: GB (occurrence: GB)
  Receive Date: 20200528
  Receipt Date: 20200528
  Transmission Date: 20200714
  Serious: Yes (Death, Life-Threatening, Hospitalization, Disabling)
  Sender: FDA-Public Use
  Company Number: GB-MYLANLABS-2020M1052119

PATIENT
  Age: 91 Year
  Sex: Male

DRUGS (6)
  1. CLOPIDOGREL [Suspect]
     Active Substance: CLOPIDOGREL BISULFATE
     Indication: PRODUCT USED FOR UNKNOWN INDICATION
     Dosage: 75 MILLIGRAM, QD
     Route: 065
  2. DOCUSATE [Concomitant]
     Active Substance: DOCUSATE
     Dosage: UNK (50MG/5ML, 5 TO 20ML AT NIGHT (AIMING FOR A DAILY MOTION))
  3. LANSOPRAZOLE. [Concomitant]
     Active Substance: LANSOPRAZOLE
     Dosage: 30 MILLIGRAM, QD (MORNING)
  4. MACROGOL 3350 [Concomitant]
     Active Substance: POLYETHYLENE GLYCOL 3350
     Dosage: 2 DOSAGE FORM, QD
  5. GAVISCON ADVANCE                   /01340901/ [Concomitant]
     Dosage: UNK, PRN (ONE OR TWO 5ML SPOONFULS TO BE TAKEN THREE TIMES A DAY AFTER FOOD AND AT NIGHT)
  6. RANITIDINE. [Concomitant]
     Active Substance: RANITIDINE
     Dosage: 20 MILLILITER, QD (75MG/5ML)

REACTIONS (5)
  - Haematemesis [Unknown]
  - Femoral neck fracture [Unknown]
  - Upper gastrointestinal haemorrhage [Fatal]
  - Hyponatraemia [Unknown]
  - Blood potassium decreased [Unknown]
